FAERS Safety Report 7892329-X (Version None)
Quarter: 2011Q4

REPORT INFORMATION
  Report Type: 
  Country: None (occurrence: None)
  Receive Date: 20111103
  Receipt Date: 20111103
  Transmission Date: 20120403
  Serious: Yes (Life-Threatening, Hospitalization)
  Sender: FDA-Public Use
  Company Number: None

PATIENT
  Age: 24 Year
  Sex: Male

DRUGS (1)
  1. ACETAMINOPHEN W/ CODEINE [Suspect]
     Indication: PAIN
     Dates: start: 20110408, end: 20110509

REACTIONS (11)
  - RASH [None]
  - SWELLING [None]
  - COUGH [None]
  - WHEEZING [None]
  - URTICARIA [None]
  - SKIN BURNING SENSATION [None]
  - OBSTRUCTIVE AIRWAYS DISORDER [None]
  - HYPERSENSITIVITY [None]
  - DYSPNOEA [None]
  - PRURITUS [None]
  - DYSPHAGIA [None]
